FAERS Safety Report 24772811 (Version 1)
Quarter: 2024Q4

REPORT INFORMATION
  Report Type: Spontaneous
  Country: IE (occurrence: IE)
  Receive Date: 20241225
  Receipt Date: 20241225
  Transmission Date: 20250115
  Serious: Yes (Death)
  Sender: ASTELLAS
  Company Number: IE-ASTELLAS-2024-AER-027538

PATIENT
  Sex: Male

DRUGS (1)
  1. CRESEMBA [Suspect]
     Active Substance: ISAVUCONAZONIUM SULFATE
     Indication: Product used for unknown indication
     Dosage: CAPSULE, HARD
     Route: 050

REACTIONS (1)
  - Death [Fatal]
